FAERS Safety Report 5999879-1 (Version None)
Quarter: 2008Q4

REPORT INFORMATION
  Report Type: 
  Country: None (occurrence: None)
  Receive Date: 20081215
  Receipt Date: 20071209
  Transmission Date: 20090506
  Serious: No
  Sender: FDA-Public Use
  Company Number: US-AMGEN-KDL227373

PATIENT
  Sex: Female

DRUGS (3)
  1. ENBREL [Suspect]
     Indication: RHEUMATOID ARTHRITIS
     Route: 058
     Dates: start: 20070322
  2. METHOTREXATE [Concomitant]
  3. PLAQUENIL [Concomitant]

REACTIONS (5)
  - HYPOAESTHESIA [None]
  - INJECTION SITE HAEMATOMA [None]
  - RESTLESS LEGS SYNDROME [None]
  - SINUSITIS [None]
  - STAPHYLOCOCCAL INFECTION [None]
